FAERS Safety Report 9822320 (Version 1)
Quarter: 2014Q1

REPORT INFORMATION
  Report Type: Spontaneous
  Country: FR (occurrence: FR)
  Receive Date: 20140116
  Receipt Date: 20140116
  Transmission Date: 20141002
  Serious: Yes (Hospitalization)
  Sender: FDA-Public Use
  Company Number: FR-US-EMD SERONO, INC.-7261678

PATIENT
  Age: 31 Year
  Sex: Female

DRUGS (4)
  1. GONAL-F [Suspect]
     Indication: IN VITRO FERTILISATION
     Route: 058
     Dates: start: 20121128, end: 20121207
  2. OVITRELLE [Suspect]
     Indication: IN VITRO FERTILISATION
     Dosage: 250 MCG/0.5 ML
     Route: 058
     Dates: start: 20121208, end: 20121208
  3. ENANTONE /00726901/ [Suspect]
     Indication: IN VITRO FERTILISATION
     Route: 058
     Dates: start: 20121122, end: 20121122
  4. DUPHASTON [Suspect]
     Indication: PRODUCT USED FOR UNKNOWN INDICATION
     Route: 048
     Dates: start: 20121212

REACTIONS (5)
  - Hyponatraemia [Recovered/Resolved]
  - Haematocrit increased [Recovered/Resolved]
  - Ovarian hyperstimulation syndrome [Recovered/Resolved]
  - Ascites [Recovered/Resolved]
  - Oliguria [Recovered/Resolved]
